FAERS Safety Report 11070119 (Version 1)
Quarter: 2015Q2

REPORT INFORMATION
  Report Type: Spontaneous
  Country: US (occurrence: US)
  Receive Date: 20150427
  Receipt Date: 20150427
  Transmission Date: 20150821
  Serious: No
  Sender: FDA-Public Use
  Company Number: US-ASTELLAS-2014US020306

PATIENT
  Sex: Male

DRUGS (1)
  1. LEXISCAN [Suspect]
     Active Substance: REGADENOSON
     Indication: CARDIOVASCULAR DISORDER
     Dosage: UNK, UNKNOWN FREQ.
     Route: 065
     Dates: start: 20141013, end: 20141013

REACTIONS (2)
  - Off label use [Unknown]
  - Micturition urgency [Unknown]

NARRATIVE: CASE EVENT DATE: 20141013
